FAERS Safety Report 11438118 (Version 1)
Quarter: 2015Q3

REPORT INFORMATION
  Report Type: Spontaneous
  Country: GB (occurrence: GB)
  Receive Date: 20150901
  Receipt Date: 20150901
  Transmission Date: 20151125
  Serious: Yes (Other)
  Sender: FDA-Public Use
  Company Number: PHHY2015GB101425

PATIENT
  Age: 48 Year
  Sex: Male

DRUGS (1)
  1. METHOTREXATE [Suspect]
     Active Substance: METHOTREXATE
     Indication: PRODUCT USED FOR UNKNOWN INDICATION
     Dosage: 15 MG, QW
     Route: 048

REACTIONS (5)
  - Muscular weakness [Unknown]
  - Blood creatine phosphokinase increased [Unknown]
  - Sensory disturbance [Unknown]
  - Small fibre neuropathy [Unknown]
  - Myositis [Unknown]
